FAERS Safety Report 15290949 (Version 3)
Quarter: 2018Q3

REPORT INFORMATION
  Report Type: Spontaneous
  Country: JP (occurrence: JP)
  Receive Date: 20180817
  Receipt Date: 20180904
  Transmission Date: 20181010
  Serious: Yes (Hospitalization)
  Sender: FDA-Public Use
  Company Number: JP-UCBSA-2018035415

PATIENT
  Age: 70 Year
  Sex: Male

DRUGS (5)
  1. TRERIEF [Concomitant]
     Active Substance: ZONISAMIDE
     Indication: PRODUCT USED FOR UNKNOWN INDICATION
     Dosage: UNK
  2. LEVODOPA [Concomitant]
     Active Substance: LEVODOPA
     Dosage: 600 MG (SIX TIMES)
  3. COMTAN [Concomitant]
     Active Substance: ENTACAPONE
     Indication: PRODUCT USED FOR UNKNOWN INDICATION
     Dosage: UNK
  4. NEUPRO [Suspect]
     Active Substance: ROTIGOTINE
     Indication: PARKINSON^S DISEASE
     Dosage: 2 MG, ONCE DAILY (QD)
     Route: 062
     Dates: start: 20180801
  5. LEVODOPA [Concomitant]
     Active Substance: LEVODOPA
     Indication: PRODUCT USED FOR UNKNOWN INDICATION
     Dosage: 550 MG (FOUR TIMES)

REACTIONS (3)
  - Personality change [Unknown]
  - Hospitalisation [Unknown]
  - Application site erythema [Unknown]

NARRATIVE: CASE EVENT DATE: 201808
